FAERS Safety Report 16655130 (Version 1)
Quarter: 2019Q3

REPORT INFORMATION
  Report Type: Spontaneous
  Country: AU (occurrence: AU)
  Receive Date: 20190801
  Receipt Date: 20190801
  Transmission Date: 20191004
  Serious: Yes (Other)
  Sender: FDA-Public Use
  Company Number: AU-TAKEDA-2019TUS045719

PATIENT
  Age: 26 Year
  Sex: Female
  Weight: 85.3 kg

DRUGS (3)
  1. ENTYVIO [Suspect]
     Active Substance: VEDOLIZUMAB
     Indication: COLITIS ULCERATIVE
     Dosage: UNK
     Route: 065
  2. CYMBALTA [Concomitant]
     Active Substance: DULOXETINE HYDROCHLORIDE
     Dosage: UNK
  3. TAPENTADOL [Concomitant]
     Active Substance: TAPENTADOL
     Dosage: UNK

REACTIONS (4)
  - Colitis ulcerative [Unknown]
  - Drug hypersensitivity [Unknown]
  - Arthralgia [Unknown]
  - Platelet count increased [Unknown]
